FAERS Safety Report 6704009-4 (Version None)
Quarter: 2010Q2

REPORT INFORMATION
  Report Type: 
  Country: None (occurrence: None)
  Receive Date: 20100430
  Receipt Date: 20100422
  Transmission Date: 20101027
  Serious: Yes (Other)
  Sender: FDA-Public Use
  Company Number: US-ROCHE-661417

PATIENT
  Sex: Male
  Weight: 33.9 kg

DRUGS (6)
  1. TOCILIZUMAB [Suspect]
     Indication: JUVENILE ARTHRITIS
     Route: 042
     Dates: start: 20090325, end: 20091002
  2. FOSAMAX [Suspect]
     Indication: DRUG USE FOR UNKNOWN INDICATION
     Route: 065
  3. METHOTREXATE [Concomitant]
  4. PREDNISONE [Concomitant]
  5. PRILOSEC [Concomitant]
  6. CALCIUM/VITAMIN D [Concomitant]

REACTIONS (3)
  - SCAN ABNORMAL [None]
  - TIC [None]
  - UPPER RESPIRATORY TRACT INFECTION [None]
